FAERS Safety Report 5176524-9 (Version None)
Quarter: 2006Q4

REPORT INFORMATION
  Report Type: 
  Country: None (occurrence: None)
  Receive Date: 20061207
  Receipt Date: 20061123
  Transmission Date: 20070319
  Serious: Yes (Life-Threatening, Other)
  Sender: FDA-Public Use
  Company Number: 232545

PATIENT
  Age: 59 Year
  Sex: Female

DRUGS (6)
  1. HERCEPTIN [Suspect]
     Indication: BREAST CANCER METASTATIC
     Dosage: 500 MG, Q3W, INTRAVENOUS
     Route: 042
     Dates: start: 20050717
  2. AMITRIPTYLINE HCL [Concomitant]
  3. PACLITAXEL [Concomitant]
  4. ONDANSETRON HCL [Concomitant]
  5. DEXAMETHASONE TAB [Concomitant]
  6. CIMETIDINE [Concomitant]

REACTIONS (2)
  - DEPRESSION [None]
  - SUICIDAL IDEATION [None]
